FAERS Safety Report 4959294-6 (Version None)
Quarter: 2006Q1

REPORT INFORMATION
  Report Type: 
  Country: None (occurrence: None)
  Receive Date: 20060331
  Receipt Date: 20060322
  Transmission Date: 20060701
  Serious: Yes (Hospitalization, Disabling)
  Sender: FDA-Public Use
  Company Number: CZ-JNJFOC-20060305874

PATIENT
  Age: 62 Year
  Sex: Female

DRUGS (3)
  1. REMINYL [Suspect]
     Indication: DRUG USE FOR UNKNOWN INDICATION
     Route: 048
  2. PROTHIADEN [Concomitant]
     Indication: SCHIZOPHRENIA
     Dosage: TREATMENT ONGOING FOR SEVERAL YEARS
     Route: 048
  3. FLUANXOL [Concomitant]
     Indication: SCHIZOPHRENIA
     Dosage: TREATMENT ONGOING FOR SEVERAL YEARS
     Route: 050

REACTIONS (1)
  - NEUROLEPTIC MALIGNANT SYNDROME [None]
